FAERS Safety Report 15709051 (Version 1)
Quarter: 2018Q4

REPORT INFORMATION
  Report Type: Report from Study
  Country: AU (occurrence: AU)
  Receive Date: 20181211
  Receipt Date: 20181211
  Transmission Date: 20190205
  Serious: Yes (Other)
  Sender: FDA-Public Use
  Company Number: AU-ROCHE-2226374

PATIENT
  Age: 41 Year
  Sex: Male
  Weight: 73 kg

DRUGS (1)
  1. CAPECITABINE. [Suspect]
     Active Substance: CAPECITABINE
     Indication: COLON CANCER STAGE III
     Route: 048

REACTIONS (2)
  - Colitis [Recovered/Resolved]
  - Mucosal inflammation [Recovered/Resolved]
